FAERS Safety Report 14948130 (Version 2)
Quarter: 2018Q2

REPORT INFORMATION
  Report Type: Report from Study
  Country: GB (occurrence: GB)
  Receive Date: 20180529
  Receipt Date: 20180601
  Transmission Date: 20180711
  Serious: Yes (Hospitalization)
  Sender: FDA-Public Use
  Company Number: GB-PFIZER INC-2018216775

PATIENT
  Age: 51 Year
  Sex: Male
  Weight: 56 kg

DRUGS (10)
  1. OXALIPLATIN. [Suspect]
     Active Substance: OXALIPLATIN
     Dosage: 220 MG, EVERY 3 WEEKS
     Route: 042
  2. OXALIPLATIN. [Suspect]
     Active Substance: OXALIPLATIN
     Indication: OESOPHAGEAL ADENOCARCINOMA
     Dosage: 220 MG, EVERY 3 WEEKS
     Route: 042
     Dates: start: 20170915
  3. OXALIPLATIN. [Suspect]
     Active Substance: OXALIPLATIN
     Dosage: 220 MG, EVERY 3 WEEKS
     Route: 042
  4. COCODAMOL [Concomitant]
     Active Substance: ACETAMINOPHEN\CODEINE PHOSPHATE
     Indication: ABDOMINAL PAIN UPPER
     Dosage: AS NEEDED
     Route: 048
     Dates: start: 20180503
  5. OXALIPLATIN. [Suspect]
     Active Substance: OXALIPLATIN
     Dosage: 220 MG, EVERY 3 WEEKS
     Route: 042
     Dates: end: 20171117
  6. AVELUMAB [Suspect]
     Active Substance: AVELUMAB
     Dosage: 590 MG, CYCLIC (ONCE EVERY 2 WEEKS)
     Route: 042
  7. CAPECITABINE. [Suspect]
     Active Substance: CAPECITABINE
     Indication: OESOPHAGEAL ADENOCARCINOMA
     Dosage: 1650 MG, 2X/DAY
     Route: 048
     Dates: start: 20170919, end: 20171201
  8. AVELUMAB [Suspect]
     Active Substance: AVELUMAB
     Indication: OESOPHAGEAL ADENOCARCINOMA
     Dosage: 590 MG, CYCLIC (ONCE EVERY 2 WEEKS)
     Route: 042
     Dates: start: 20171221
  9. AVELUMAB [Suspect]
     Active Substance: AVELUMAB
     Dosage: 590 MG, CYCLIC (ONCE EVERY 2 WEEKS)
     Route: 042
  10. OXALIPLATIN. [Suspect]
     Active Substance: OXALIPLATIN
     Dosage: 220 MG, EVERY 3 WEEKS
     Route: 042

REACTIONS (1)
  - Melaena [Not Recovered/Not Resolved]

NARRATIVE: CASE EVENT DATE: 20180516
